FAERS Safety Report 5863495-2 (Version None)
Quarter: 2008Q3

REPORT INFORMATION
  Report Type: 
  Country: None (occurrence: None)
  Receive Date: 20080828
  Receipt Date: 20080821
  Transmission Date: 20090109
  Serious: Yes (Other)
  Sender: FDA-Public Use
  Company Number: US-PFIZER INC-2005036924

PATIENT
  Sex: Female
  Weight: 63.5 kg

DRUGS (3)
  1. NARDIL [Suspect]
     Indication: MAJOR DEPRESSION
     Route: 048
  2. VALERIAN ROOT [Suspect]
     Indication: SLEEP DISORDER
     Route: 048
  3. ALL OTHER NON-THERAPEUTIC PRODUCTS [Suspect]
     Indication: ILL-DEFINED DISORDER
     Route: 048

REACTIONS (10)
  - DEPRESSION [None]
  - DIZZINESS [None]
  - FEELING ABNORMAL [None]
  - INSOMNIA [None]
  - INTERVERTEBRAL DISC PROTRUSION [None]
  - LIBIDO DECREASED [None]
  - NASOPHARYNGITIS [None]
  - ORGASM ABNORMAL [None]
  - PAIN IN EXTREMITY [None]
  - SCOLIOSIS [None]
